FAERS Safety Report 11345497 (Version 3)
Quarter: 2016Q3

REPORT INFORMATION
  Report Type: Spontaneous
  Country: JP (occurrence: JP)
  Receive Date: 20150806
  Receipt Date: 20160708
  Transmission Date: 20161109
  Serious: Yes (Hospitalization)
  Sender: FDA-Public Use
  Company Number: JP-ASTRAZENECA-2015SE74496

PATIENT
  Age: 945 Month
  Sex: Male
  Weight: 75 kg

DRUGS (10)
  1. CASODEX [Suspect]
     Active Substance: BICALUTAMIDE
     Indication: PROSTATE CANCER
     Route: 048
     Dates: start: 20140910
  2. ALDOMET [Concomitant]
     Active Substance: METHYLDOPA
     Dosage: 250.0MG UNKNOWN
     Route: 048
  3. MICOMBI [Concomitant]
     Active Substance: HYDROCHLOROTHIAZIDE\TELMISARTAN
     Dosage: 1 DF AFTER BREAKFAST
     Route: 048
     Dates: start: 20141020
  4. CASODEX [Suspect]
     Active Substance: BICALUTAMIDE
     Indication: PROSTATE CANCER
     Route: 048
     Dates: start: 20110610, end: 20140603
  5. ADALAT CC [Concomitant]
     Active Substance: NIFEDIPINE
     Dosage: 40.0MG UNKNOWN
     Route: 048
  6. OMNIPAQUE [Concomitant]
     Active Substance: IOHEXOL
     Dosage: DOSE UNKNOWN
     Route: 065
  7. SEISHOKU [Concomitant]
     Active Substance: SODIUM CHLORIDE
     Dosage: DOSE UNKNOWN
     Route: 065
  8. FAMOTIDINE. [Concomitant]
     Active Substance: FAMOTIDINE
     Dosage: 20.0MG UNKNOWN
     Route: 048
  9. ATENOLOL. [Concomitant]
     Active Substance: ATENOLOL
     Dosage: 100.0MG UNKNOWN
     Route: 048
  10. MINIPRESS [Concomitant]
     Active Substance: PRAZOSIN HYDROCHLORIDE
     Dosage: 1 MG AFTER BREAKFAST AND EVENING MEAL
     Route: 048
     Dates: start: 20141020

REACTIONS (2)
  - Fibroadenoma of breast [Recovered/Resolved]
  - Gynaecomastia [Unknown]

NARRATIVE: CASE EVENT DATE: 201312
